FAERS Safety Report 18071262 (Version 1)
Quarter: 2020Q3

REPORT INFORMATION
  Report Type: Spontaneous
  Country: US (occurrence: US)
  Receive Date: 20200725
  Receipt Date: 20200725
  Transmission Date: 20201103
  Serious: Yes (Other)
  Sender: FDA-Public Use
  Company Number: None

PATIENT
  Age: 31 Year
  Sex: Male
  Weight: 121.5 kg

DRUGS (6)
  1. MELATONIN [Concomitant]
     Active Substance: MELATONIN
  2. ASSURED INSTANT HAND SANITIZER VITAMIN E AND ALOE [Suspect]
     Active Substance: ALCOHOL
     Indication: INFECTION PROPHYLAXIS
     Dosage: ?          QUANTITY:1 10OZ BOTTLE;OTHER FREQUENCY:20?30 TIMES A DAY;?
     Route: 061
     Dates: start: 20200201, end: 20200715
  3. SERTRALINE HYDROCHLORIDE. [Concomitant]
     Active Substance: SERTRALINE HYDROCHLORIDE
  4. DEXTROAMPHET SACCHARAT, AMPHET ASPARTATE, DEXTROAMPHET SULFATE AND AMPHET SULFAT [Concomitant]
     Active Substance: AMPHETAMINE ASPARTATE\AMPHETAMINE SULFATE\DEXTROAMPHETAMINE SACCHARATE\DEXTROAMPHETAMINE SULFATE
  5. VITAMIN D [Concomitant]
     Active Substance: VITAMIN D NOS
  6. IBUPROFEN. [Concomitant]
     Active Substance: IBUPROFEN

REACTIONS (12)
  - Panic reaction [None]
  - Anxiety disorder [None]
  - Suspected product quality issue [None]
  - Hyperhidrosis [None]
  - Mania [None]
  - Depersonalisation/derealisation disorder [None]
  - Palpitations [None]
  - Paranoia [None]
  - Anxiety [None]
  - Respiratory rate increased [None]
  - Loss of employment [None]
  - Confusional state [None]

NARRATIVE: CASE EVENT DATE: 20200610
